FAERS Safety Report 4525420-6 (Version None)
Quarter: 2004Q4

REPORT INFORMATION
  Report Type: 
  Country: None (occurrence: None)
  Receive Date: 20041213
  Receipt Date: 20041202
  Transmission Date: 20050328
  Serious: Yes (Disabling, Other)
  Sender: FDA-Public Use
  Company Number: GB-GLAXOSMITHKLINE-B0359048A

PATIENT
  Age: 23 Year
  Sex: Female
  Weight: 40 kg

DRUGS (4)
  1. PAROXETINE HCL [Suspect]
     Indication: DEPRESSION
     Dosage: 10ML UNKNOWN
     Route: 048
     Dates: start: 20020901, end: 20040401
  2. TEGRETOL [Concomitant]
     Dosage: 10ML PER DAY
     Route: 048
     Dates: start: 19880101
  3. DIAZEPAM [Concomitant]
     Dosage: .5MG PER DAY
     Route: 048
     Dates: start: 19880101
  4. MIRTAZAPINE [Concomitant]
     Indication: DEPRESSION
     Dosage: 15MG PER DAY
     Route: 048
     Dates: start: 20021001

REACTIONS (2)
  - PRE-EXISTING CONDITION IMPROVED [None]
  - SALIVARY HYPERSECRETION [None]
